FAERS Safety Report 25942742 (Version 1)
Quarter: 2025Q4

REPORT INFORMATION
  Report Type: Report from Study
  Country: US (occurrence: US)
  Receive Date: 20251021
  Receipt Date: 20251021
  Transmission Date: 20260117
  Serious: Yes (Other)
  Sender: BAUSCH AND LOMB
  Company Number: US-BAUSCHBL-2025BNL030295

PATIENT
  Age: 48 Year
  Sex: Female

DRUGS (1)
  1. MIEBO [Suspect]
     Active Substance: PERFLUOROHEXYLOCTANE
     Indication: Dry eye
     Dosage: INSTILL 1 DROP INTO EACH EYE 4 TIMES DAILY (MUST SEE PACKAGE INSERT FOR ADMIN INSTRUCTIONS)
     Route: 047
     Dates: start: 20240924, end: 20251012

REACTIONS (3)
  - Blindness day [Unknown]
  - Headache [Unknown]
  - Dry eye [Unknown]
